FAERS Safety Report 20725076 (Version 1)
Quarter: 2022Q2

REPORT INFORMATION
  Report Type: Spontaneous
  Country: US (occurrence: US)
  Receive Date: 20220419
  Receipt Date: 20220419
  Transmission Date: 20220721
  Serious: Yes (Other)
  Sender: FDA-Public Use
  Company Number: US-SUN PHARMACEUTICAL INDUSTRIES LTD-2022R1-333185

PATIENT
  Sex: Female

DRUGS (2)
  1. DEXAMETHASONE [Suspect]
     Active Substance: DEXAMETHASONE
     Indication: Tricuspid valve incompetence
     Dosage: UNK
     Route: 065
  2. TERBUTALINE [Suspect]
     Active Substance: TERBUTALINE
     Indication: Tricuspid valve incompetence
     Dosage: UNK
     Route: 065

REACTIONS (3)
  - Hydrops foetalis [Unknown]
  - Exposure during pregnancy [Unknown]
  - Premature baby [Unknown]
